FAERS Safety Report 7402286-8 (Version None)
Quarter: 2011Q1

REPORT INFORMATION
  Report Type: 
  Country: None (occurrence: None)
  Receive Date: 20110331
  Receipt Date: 20110119
  Transmission Date: 20110831
  Serious: Yes (Other)
  Sender: FDA-Public Use
  Company Number: 013624

PATIENT
  Age: 83 Year
  Sex: Male

DRUGS (1)
  1. MACUQEN (PEGAPTANIB SODIUM) SOLUTION FOR INJECTION [Suspect]
     Indication: MACULAR DEGENERATION
     Dosage: 0.3MG
     Dates: start: 20090401

REACTIONS (2)
  - VISUAL IMPAIRMENT [None]
  - RETINAL DISORDER [None]
